FAERS Safety Report 6244460-2 (Version None)
Quarter: 2009Q2

REPORT INFORMATION
  Report Type: 
  Country: None (occurrence: None)
  Receive Date: 20090623
  Receipt Date: 20090623
  Transmission Date: 20091009
  Serious: Yes (Hospitalization)
  Sender: FDA-Public Use
  Company Number: None

PATIENT
  Age: 48 Year
  Sex: Female
  Weight: 80.2867 kg

DRUGS (4)
  1. ZOSYN [Suspect]
     Indication: PSEUDOMONAS INFECTION
     Dosage: 4.5 G IV Q8H
     Route: 042
     Dates: start: 20090513, end: 20090612
  2. ZOSYN [Suspect]
     Indication: WOUND INFECTION
     Dosage: 4.5 G IV Q8H
     Route: 042
     Dates: start: 20090513, end: 20090612
  3. ZOSYN [Suspect]
  4. ZOSYN [Suspect]

REACTIONS (2)
  - BLOOD PRESSURE INCREASED [None]
  - HEADACHE [None]
